FAERS Safety Report 10664513 (Version 2)
Quarter: 2014Q4

REPORT INFORMATION
  Report Type: Spontaneous
  Country: IT (occurrence: IT)
  Receive Date: 20141219
  Receipt Date: 20141226
  Transmission Date: 20150529
  Serious: Yes (Hospitalization)
  Sender: FDA-Public Use
  Company Number: IT-MERCK-1412ITA007684

PATIENT
  Age: 39 Year
  Sex: Male
  Weight: 75 kg

DRUGS (3)
  1. VICTRELIS [Suspect]
     Active Substance: BOCEPREVIR
     Indication: HEPATIC CIRRHOSIS
     Dosage: 2400 MG DAILY
     Route: 048
     Dates: start: 20130909, end: 20140124
  2. REBETOL [Suspect]
     Active Substance: RIBAVIRIN
     Indication: HEPATIC CIRRHOSIS
     Dosage: 1200 MG DAILY
     Route: 048
     Dates: start: 20130812, end: 20140124
  3. PEGINTRON [Suspect]
     Active Substance: PEGINTERFERON ALFA-2B
     Indication: HEPATIC CIRRHOSIS
     Dosage: 120MCG WEEKLY
     Route: 058
     Dates: start: 20130812, end: 20140124

REACTIONS (1)
  - Chest pain [Recovered/Resolved]

NARRATIVE: CASE EVENT DATE: 20140124
